FAERS Safety Report 18951718 (Version 1)
Quarter: 2021Q1

REPORT INFORMATION
  Report Type: Spontaneous
  Country: AU (occurrence: AU)
  Receive Date: 20210301
  Receipt Date: 20210301
  Transmission Date: 20210420
  Serious: Yes (Hospitalization)
  Sender: FDA-Public Use
  Company Number: AU-AMGEN-AUSSP2021028496

PATIENT
  Age: 60 Year
  Sex: Female

DRUGS (4)
  1. DEXAMETHASONE. [Concomitant]
     Active Substance: DEXAMETHASONE
     Dosage: UNK, PRIOR TO CHEMOTHERAPY AND ALSO 3 DAYS AFTER THE CHEMOTHERAPY
  2. RISTEMPA [Suspect]
     Active Substance: PEGFILGRASTIM
     Dosage: 6 MILLIGRAM, AFTER CHEMO (24 HOURS)
     Route: 058
  3. STEMETIL [PROCHLORPERAZINE] [Concomitant]
     Active Substance: PROCHLORPERAZINE
     Indication: DIZZINESS
     Dosage: UNK
  4. RISTEMPA [Suspect]
     Active Substance: PEGFILGRASTIM
     Indication: WHITE BLOOD CELL COUNT DECREASED
     Dosage: 6 MILLIGRAM, AFTER CHEMO (24 HOURS)
     Route: 058
     Dates: start: 20210217

REACTIONS (6)
  - Hypoaesthesia oral [Recovering/Resolving]
  - Body temperature increased [Recovering/Resolving]
  - Paraesthesia [Recovering/Resolving]
  - Oesophageal spasm [Recovering/Resolving]
  - Fatigue [Recovering/Resolving]
  - Confusional state [Recovering/Resolving]

NARRATIVE: CASE EVENT DATE: 20210218
